FAERS Safety Report 23016402 (Version 2)
Quarter: 2024Q1

REPORT INFORMATION
  Report Type: Spontaneous
  Country: CA (occurrence: CA)
  Receive Date: 20231002
  Receipt Date: 20240304
  Transmission Date: 20240409
  Serious: Yes (Hospitalization, Other)
  Sender: FDA-Public Use
  Company Number: CA-CELLTRION INC.-2023CA002413

PATIENT

DRUGS (7)
  1. YUFLYMA [Suspect]
     Active Substance: ADALIMUMAB-AATY
     Indication: Ankylosing spondylitis
     Dosage: 80 MILLIGRAM, INITIAL LOADING DOSE
     Route: 058
     Dates: start: 20230127
  2. YUFLYMA [Suspect]
     Active Substance: ADALIMUMAB-AATY
     Dosage: 40 MILLIGRAM, Q2WEEKS, MAINTENANCE DOSE
     Route: 058
     Dates: start: 20230627
  3. YUFLYMA [Suspect]
     Active Substance: ADALIMUMAB-AATY
     Dosage: 40 MILLIGRAM, Q2WEEKS, MAINTENANCE DOSE
     Route: 058
     Dates: start: 20240222
  4. NAPROXEN [Concomitant]
     Active Substance: NAPROXEN
     Dosage: 500 MG
     Dates: start: 20220909
  5. DICLOFENAC [Concomitant]
     Active Substance: DICLOFENAC
     Dosage: 75 MG
  6. CARBAMAZEPINE [Concomitant]
     Active Substance: CARBAMAZEPINE
     Indication: Seizure
     Dosage: 500 MG
  7. CARBAMAZEPINE [Concomitant]
     Active Substance: CARBAMAZEPINE
     Dosage: 600 MG PER DAY

REACTIONS (7)
  - Seizure [Recovered/Resolved]
  - Mania [Recovered/Resolved]
  - Delusion [Recovered/Resolved]
  - Sleep deficit [Recovered/Resolved]
  - Decreased appetite [Recovered/Resolved]
  - Uveitis [Not Recovered/Not Resolved]
  - Prescribed overdose [Not Recovered/Not Resolved]

NARRATIVE: CASE EVENT DATE: 20240114
